FAERS Safety Report 15068701 (Version 3)
Quarter: 2018Q3

REPORT INFORMATION
  Report Type: Spontaneous
  Country: MY (occurrence: MY)
  Receive Date: 20180626
  Receipt Date: 20180820
  Transmission Date: 20181010
  Serious: Yes (Other)
  Sender: FDA-Public Use
  Company Number: MY-BAUSCH-BL-2018-017677

PATIENT
  Age: 30 Year
  Sex: Male

DRUGS (1)
  1. METRONIDAZOLE. [Suspect]
     Active Substance: METRONIDAZOLE
     Indication: BLASTOCYSTIS INFECTION
     Route: 065
     Dates: start: 2017

REACTIONS (1)
  - Blastocystis infection [Unknown]
